FAERS Safety Report 6030159-4 (Version None)
Quarter: 2009Q1

REPORT INFORMATION
  Report Type: 
  Country: None (occurrence: None)
  Receive Date: 20090105
  Receipt Date: 20090105
  Transmission Date: 20090719
  Serious: Yes (Other)
  Sender: FDA-Public Use
  Company Number: None

PATIENT
  Age: 74 Year
  Sex: Female
  Weight: 83.4619 kg

DRUGS (2)
  1. ADVAIR DISKUS 250/50 [Suspect]
     Indication: ASTHMA
     Dosage: 250/50 2XDAY INHAL
     Route: 055
     Dates: start: 20010301, end: 20080301
  2. ADVAIR DISKUS 250/50 [Suspect]
     Indication: EMPHYSEMA
     Dosage: 250/50 2XDAY INHAL
     Route: 055
     Dates: start: 20010301, end: 20080301

REACTIONS (2)
  - DIPLOPIA [None]
  - VISION BLURRED [None]
